FAERS Safety Report 5131030-2 (Version None)
Quarter: 2006Q4

REPORT INFORMATION
  Report Type: 
  Country: None (occurrence: None)
  Receive Date: 20061019
  Receipt Date: 20061017
  Transmission Date: 20070319
  Serious: Yes (Hospitalization)
  Sender: FDA-Public Use
  Company Number: SE-ROXANE LABORATORIES, INC-2006-DE-05468GD

PATIENT
  Sex: Male

DRUGS (14)
  1. MORPHINE [Suspect]
     Indication: PROCEDURAL PAIN
     Dosage: 1 MG/ML, BOLUS DOSE OF 1 MG WITH A LOCKOUT TIME OF 6 MIN (MAXIMUM 10 MG/H)
     Route: 042
  2. FENTANYL [Suspect]
     Indication: ANALGESIC EFFECT
  3. ACETAMINOPHEN [Concomitant]
     Dosage: 1 G BEFORE AND EVERY 6 H AFTER OPERATION DURING HOSPITAL STAY
     Route: 048
  4. DIAZEPAM [Concomitant]
     Route: 048
  5. ACETATED RINGER'S SOLUTION [Concomitant]
     Dosage: 200 - 300 ML
     Route: 042
  6. ROCURONIUM [Concomitant]
     Indication: HYPOTONIA
  7. OXYGEN [Concomitant]
     Route: 055
  8. NITROUS OXIDE W/ OXYGEN [Concomitant]
     Route: 055
  9. SEVOFLURANE [Concomitant]
     Indication: ANAESTHESIA
     Route: 055
  10. MEPIVACAINE HCL [Concomitant]
     Indication: PERIOPERATIVE ANALGESIA
     Route: 008
  11. ADRENALINE [Concomitant]
     Indication: PERIOPERATIVE ANALGESIA
     Dosage: 2 - 5 ML/H
     Route: 008
  12. FLUIDS [Concomitant]
     Indication: BLOOD PRESSURE MANAGEMENT
     Route: 042
  13. GLYCOPYRROLATE [Concomitant]
     Indication: NEUROMUSCULAR BLOCKADE REVERSAL
  14. NEOSTIGMINE [Concomitant]
     Indication: NEUROMUSCULAR BLOCKADE REVERSAL

REACTIONS (1)
  - PYREXIA [None]
